FAERS Safety Report 6006760-0 (Version None)
Quarter: 2008Q4

REPORT INFORMATION
  Report Type: 
  Country: None (occurrence: None)
  Receive Date: 20081215
  Receipt Date: 20081204
  Transmission Date: 20090506
  Serious: Yes (Hospitalization)
  Sender: FDA-Public Use
  Company Number: 2008SP024765

PATIENT
  Age: 74 Year
  Sex: Male

DRUGS (4)
  1. DIAFUSOR (GLYCERYL TRINITRATE) [Suspect]
     Indication: DRUG USE FOR UNKNOWN INDICATION
     Dosage: 5 MG; QD; CUT
     Route: 003
     Dates: start: 20061011, end: 20061011
  2. PARKINANE LP 2 [Concomitant]
  3. DOXAZOSIN MESYLATE [Concomitant]
  4. TIAPRIDAL [Concomitant]

REACTIONS (3)
  - FALL [None]
  - HYPOTENSION [None]
  - SELF-MEDICATION [None]
